FAERS Safety Report 21346914 (Version 2)
Quarter: 2022Q3

REPORT INFORMATION
  Report Type: Report from Study
  Country: CA (occurrence: CA)
  Receive Date: 20220918
  Receipt Date: 20220927
  Transmission Date: 20221027
  Serious: Yes (Hospitalization)
  Sender: FDA-Public Use
  Company Number: CA-ABBVIE-4127131

PATIENT
  Age: 68 Year
  Sex: Male

DRUGS (12)
  1. SKYRIZI [Suspect]
     Active Substance: RISANKIZUMAB-RZAA
     Indication: Product used for unknown indication
     Route: 058
     Dates: start: 20191117
  2. SKYRIZI [Suspect]
     Active Substance: RISANKIZUMAB-RZAA
     Route: 058
     Dates: start: 20191017, end: 20191117
  3. SPIRIVA [Concomitant]
     Active Substance: TIOTROPIUM BROMIDE MONOHYDRATE
     Indication: Chronic obstructive pulmonary disease
     Dosage: 2 PUFFS
     Route: 048
     Dates: start: 20000101
  4. SYMBICORT [Concomitant]
     Active Substance: BUDESONIDE\FORMOTEROL FUMARATE DIHYDRATE
     Indication: Chronic obstructive pulmonary disease
     Dosage: 2 PUFFS
     Route: 048
     Dates: start: 19980101
  5. LASIX [Concomitant]
     Active Substance: FUROSEMIDE
     Indication: Oedema
     Dosage: AS NEEDED
     Route: 048
     Dates: start: 201906
  6. CALCIUM [Concomitant]
     Active Substance: CALCIUM
     Indication: Hip fracture
     Route: 048
     Dates: start: 20191223
  7. VENTOLIN [Concomitant]
     Active Substance: ALBUTEROL SULFATE
     Indication: Chronic obstructive pulmonary disease
     Dosage: 2 PUFFS
     Route: 048
     Dates: start: 19980101
  8. VENTOLIN [Concomitant]
     Active Substance: ALBUTEROL SULFATE
     Indication: Chronic obstructive pulmonary disease
     Dosage: TIME INTERVAL: AS NECESSARY: 2 PUFFS
     Route: 048
     Dates: start: 19980101
  9. APIXABAN [Concomitant]
     Active Substance: APIXABAN
     Indication: Pulmonary thrombosis
     Route: 048
     Dates: start: 20220520
  10. LUMIGAN [Concomitant]
     Active Substance: BIMATOPROST
     Indication: Cataract
     Dosage: 1 DROP
     Route: 047
     Dates: start: 20200522
  11. OXYGEN [Concomitant]
     Active Substance: OXYGEN
     Indication: Chronic obstructive pulmonary disease
     Dosage: AS NEEDED
     Route: 045
     Dates: start: 201911
  12. MORPHINE [Concomitant]
     Active Substance: MORPHINE
     Indication: Fracture pain
     Dosage: AS NEEDED
     Route: 048
     Dates: start: 20191220

REACTIONS (1)
  - Chronic obstructive pulmonary disease [Recovered/Resolved]

NARRATIVE: CASE EVENT DATE: 20220910
